FAERS Safety Report 13746076 (Version 1)
Quarter: 2017Q3

REPORT INFORMATION
  Report Type: Spontaneous
  Country: US (occurrence: US)
  Receive Date: 20170712
  Receipt Date: 20170712
  Transmission Date: 20171127
  Serious: Yes (Life-Threatening, Hospitalization)
  Sender: FDA-Public Use
  Company Number: None

PATIENT
  Age: 83 Year
  Sex: Male
  Weight: 96.75 kg

DRUGS (17)
  1. CARVEDILOL. [Concomitant]
     Active Substance: CARVEDILOL
  2. HYDRALAZINE [Concomitant]
     Active Substance: HYDRALAZINE HYDROCHLORIDE
  3. POTASSIUM CHLORIDE. [Concomitant]
     Active Substance: POTASSIUM CHLORIDE
  4. SENNA [Concomitant]
     Active Substance: SENNA LEAF\SENNOSIDES\SENNOSIDES A AND B
  5. TAMSULOSIN [Concomitant]
     Active Substance: TAMSULOSIN
  6. GABAPENTIN. [Concomitant]
     Active Substance: GABAPENTIN
  7. INSULIN [Concomitant]
     Active Substance: INSULIN NOS
  8. ATORVASTATIN [Concomitant]
     Active Substance: ATORVASTATIN
  9. BUMETANIDE. [Concomitant]
     Active Substance: BUMETANIDE
  10. COLACE [Concomitant]
     Active Substance: DOCUSATE SODIUM
  11. ISOSORBIDE MONONITRATE. [Concomitant]
     Active Substance: ISOSORBIDE MONONITRATE
  12. METOLOZONE [Concomitant]
  13. ONDANSETRON [Concomitant]
     Active Substance: ONDANSETRON
  14. MIRALAX [Concomitant]
     Active Substance: POLYETHYLENE GLYCOL 3350
  15. POTASSIUM CHLORIDE. [Suspect]
     Active Substance: POTASSIUM CHLORIDE
     Indication: BLOOD POTASSIUM ABNORMAL
     Dosage: ?          OTHER STRENGTH:MEQ;QUANTITY:4 TABLET(S);?
     Route: 048
  16. ASPIRIN. [Concomitant]
     Active Substance: ASPIRIN
  17. TUMS [Concomitant]
     Active Substance: CALCIUM CARBONATE

REACTIONS (3)
  - Shock [None]
  - Apparent death [None]
  - Blood potassium decreased [None]

NARRATIVE: CASE EVENT DATE: 20170708
